FAERS Safety Report 6070824-6 (Version None)
Quarter: 2009Q1

REPORT INFORMATION
  Report Type: 
  Country: None (occurrence: None)
  Receive Date: 20090209
  Receipt Date: 20080807
  Transmission Date: 20090719
  Serious: No
  Sender: FDA-Public Use
  Company Number: A0741572A

PATIENT
  Sex: Female

DRUGS (2)
  1. PAXIL [Suspect]
     Dosage: 20MG PER DAY
     Route: 048
  2. UNKNOWN [Concomitant]

REACTIONS (3)
  - ABASIA [None]
  - VOMITING [None]
  - WITHDRAWAL SYNDROME [None]
